FAERS Safety Report 25508125 (Version 2)
Quarter: 2025Q4

REPORT INFORMATION
  Report Type: Spontaneous
  Country: US (occurrence: US)
  Receive Date: 20250703
  Receipt Date: 20251209
  Transmission Date: 20260117
  Serious: Yes (Other)
  Sender: COOPERSURGICAL
  Company Number: US-COOPERSURGICAL, INC.-2025CPS005135

PATIENT
  Age: 24 Year
  Sex: Female
  Weight: 58.957 kg

DRUGS (1)
  1. PARAGARD T 380A [Suspect]
     Active Substance: COPPER
     Indication: Contraception
     Dosage: UNK
     Route: 015
     Dates: start: 20180301

REACTIONS (13)
  - Haemorrhagic ovarian cyst [Unknown]
  - Ovarian cyst ruptured [Recovered/Resolved]
  - Embedded device [Not Recovered/Not Resolved]
  - Complication of device removal [Not Recovered/Not Resolved]
  - Device breakage [Not Recovered/Not Resolved]
  - Foreign body in reproductive tract [Not Recovered/Not Resolved]
  - Uterine cervix hyperplasia [Unknown]
  - Emotional distress [Not Recovered/Not Resolved]
  - Anxiety [Unknown]
  - Fear [Not Recovered/Not Resolved]
  - Device issue [Recovered/Resolved]
  - Muscle spasms [Unknown]
  - Device dislocation [Not Recovered/Not Resolved]

NARRATIVE: CASE EVENT DATE: 20191201
